FAERS Safety Report 4490999-X (Version None)
Quarter: 2004Q4

REPORT INFORMATION
  Report Type: 
  Country: None (occurrence: None)
  Receive Date: 20041027
  Receipt Date: 20041019
  Transmission Date: 20050328
  Serious: Yes (Life-Threatening, Hospitalization)
  Sender: FDA-Public Use
  Company Number: STA-AE-04-MTX-409

PATIENT
  Age: 68 Year
  Sex: Female

DRUGS (10)
  1. RHEUMATREX [Suspect]
     Indication: RHEUMATOID ARTHRITIS
     Dosage: 4 MG 1X PER 1 WK, ORAL
     Route: 048
     Dates: start: 20040324, end: 20040101
  2. RHEUMATREX [Suspect]
     Indication: RHEUMATOID ARTHRITIS
     Dosage: 6 MG 1X PER 1 WK, ORAL
     Route: 048
     Dates: start: 20040407, end: 20040812
  3. RIMATIL (BUCILLAMINE) [Concomitant]
  4. PREDNISOLONE [Concomitant]
  5. ALFAROL (ALFACALCIDOL) [Concomitant]
  6. VOLTAREN [Concomitant]
  7. GASTER (FAMOTIDINE) [Concomitant]
  8. PHENOBARBITAL TAB [Concomitant]
  9. BLOPRESS (CANDESARTAN CILEXETIL) [Concomitant]
  10. AMLODIPINE BESYLATE [Concomitant]

REACTIONS (9)
  - BLOOD PRESSURE DECREASED [None]
  - CHILLS [None]
  - CONDITION AGGRAVATED [None]
  - HYPOALBUMINAEMIA [None]
  - INTERSTITIAL LUNG DISEASE [None]
  - LYMPHOCYTE STIMULATION TEST POSITIVE [None]
  - NAUSEA [None]
  - PYREXIA [None]
  - VOMITING [None]
